FAERS Safety Report 6862218-8 (Version None)
Quarter: 2010Q3

REPORT INFORMATION
  Report Type: 
  Country: None (occurrence: None)
  Receive Date: 20100721
  Receipt Date: 20100707
  Transmission Date: 20110219
  Serious: Yes (Hospitalization)
  Sender: FDA-Public Use
  Company Number: PHHY2010GB06301

PATIENT
  Sex: Male

DRUGS (1)
  1. CLOZARIL [Suspect]
     Indication: SCHIZOPHRENIA
     Dosage: UNK
     Dates: start: 20081019, end: 20100127

REACTIONS (5)
  - ANXIETY [None]
  - DELUSION [None]
  - EXPOSURE TO TOXIC AGENT [None]
  - LOSS OF CONSCIOUSNESS [None]
  - TACHYCARDIA [None]
